FAERS Safety Report 8512785-3 (Version None)
Quarter: 2012Q2

REPORT INFORMATION
  Report Type: 
  Country: None (occurrence: None)
  Receive Date: 20120405
  Receipt Date: 20090430
  Transmission Date: 20120825
  Serious: Yes (Hospitalization)
  Sender: FDA-Public Use
  Company Number: PHEH2009US03646

PATIENT
  Age: 82 Year
  Sex: Female
  Weight: 54.2 kg

DRUGS (3)
  1. LIPITOR [Concomitant]
  2. RECLAST [Suspect]
     Dosage: 5 MG, ONCE/SINGLE, INTRAVENOUS
     Route: 042
     Dates: start: 20090319, end: 20090319
  3. SYNTHROID [Concomitant]

REACTIONS (4)
  - FATIGUE [None]
  - LETHARGY [None]
  - RENAL FAILURE ACUTE [None]
  - BLOOD CREATININE INCREASED [None]
